FAERS Safety Report 5251813-8 (Version None)
Quarter: 2007Q1

REPORT INFORMATION
  Report Type: 
  Country: None (occurrence: None)
  Receive Date: 20070228
  Receipt Date: 20070216
  Transmission Date: 20070707
  Serious: Yes (Other)
  Sender: FDA-Public Use
  Company Number: US-PFIZER INC-2007013263

PATIENT
  Sex: Male
  Weight: 78 kg

DRUGS (7)
  1. CADUET [Suspect]
     Indication: BLOOD PRESSURE
     Dosage: TEXT:5/20MG
  2. CADUET [Suspect]
     Indication: BLOOD CHOLESTEROL
  3. LYRICA [Suspect]
     Indication: HERPES ZOSTER
     Route: 048
  4. TETRACYCLINE [Concomitant]
  5. CENTRUM [Concomitant]
  6. VITAMINS [Concomitant]
  7. ALL OTHER THERAPEUTIC PRODUCTS [Concomitant]

REACTIONS (4)
  - GAIT DISTURBANCE [None]
  - HERPES ZOSTER [None]
  - SOMNOLENCE [None]
  - VISION BLURRED [None]
